FAERS Safety Report 7316293-7 (Version None)
Quarter: 2011Q1

REPORT INFORMATION
  Report Type: 
  Country: None (occurrence: None)
  Receive Date: 20110225
  Receipt Date: 20110214
  Transmission Date: 20110831
  Serious: Yes (Hospitalization)
  Sender: FDA-Public Use
  Company Number: US-CELGENEUS-163-CCAZA-11021762

PATIENT
  Age: 39 Year
  Sex: Male
  Weight: 67 kg

DRUGS (6)
  1. PHENERGAN [Concomitant]
     Route: 065
  2. CYCLOPHOSPHAMIDE [Suspect]
     Indication: MYCOSIS FUNGOIDES
     Route: 065
     Dates: start: 20110126, end: 20110126
  3. CELEXA [Concomitant]
     Route: 065
  4. MORPHINE [Concomitant]
     Route: 065
  5. AZACITIDINE [Suspect]
     Indication: MYCOSIS FUNGOIDES
     Route: 051
     Dates: start: 20110121, end: 20110125
  6. VINCRISTINE [Suspect]
     Indication: MYCOSIS FUNGOIDES
     Route: 065
     Dates: start: 20110128, end: 20110128

REACTIONS (1)
  - PAIN [None]
